FAERS Safety Report 6401567-4 (Version None)
Quarter: 2009Q4

REPORT INFORMATION
  Report Type: 
  Country: None (occurrence: None)
  Receive Date: 20091015
  Receipt Date: 20091009
  Transmission Date: 20100525
  Serious: Yes (Death, Life-Threatening)
  Sender: FDA-Public Use
  Company Number: JP-JNJFOC-20090700966

PATIENT
  Age: 65 Year
  Sex: Male
  Weight: 47 kg

DRUGS (16)
  1. DUROTEP MT [Suspect]
     Route: 062
  2. DUROTEP MT [Suspect]
     Indication: CANCER PAIN
     Route: 062
  3. OPSO [Concomitant]
     Indication: CANCER PAIN
     Route: 048
  4. RISPERDAL [Concomitant]
     Route: 048
  5. RISPERDAL [Concomitant]
     Route: 048
  6. URSO 250 [Concomitant]
     Indication: HEPATIC FUNCTION ABNORMAL
     Route: 048
  7. GASMOTIN [Concomitant]
     Route: 048
  8. DAI-KENCHU-TO [Concomitant]
     Route: 048
  9. BIOFERMIN [Concomitant]
     Route: 048
  10. PROTECADIN [Concomitant]
     Route: 048
  11. RISUMIC [Concomitant]
     Route: 048
  12. LULLAN [Concomitant]
     Route: 048
  13. ROHYPNOL [Concomitant]
     Route: 048
  14. ROHYPNOL [Concomitant]
     Route: 048
  15. TETRAMIDE [Concomitant]
     Route: 048
  16. INOVAN [Concomitant]
     Route: 065

REACTIONS (2)
  - DEPRESSED LEVEL OF CONSCIOUSNESS [None]
  - PNEUMONIA ASPIRATION [None]
